FAERS Safety Report 5618436-X (Version None)
Quarter: 2008Q1

REPORT INFORMATION
  Report Type: 
  Country: None (occurrence: None)
  Receive Date: 20080207
  Receipt Date: 20080125
  Transmission Date: 20080703
  Serious: Yes (Hospitalization)
  Sender: FDA-Public Use
  Company Number: US-AMGEN-US247387

PATIENT
  Sex: Female

DRUGS (8)
  1. ENBREL [Suspect]
     Indication: RHEUMATOID ARTHRITIS
     Route: 065
     Dates: start: 19980101
  2. PROZAC [Concomitant]
     Route: 065
     Dates: start: 20020701
  3. OXYCONTIN [Concomitant]
     Route: 065
     Dates: start: 20010101
  4. PREDNISONE TAB [Concomitant]
     Route: 065
     Dates: start: 19980101
  5. LOTREL [Concomitant]
     Route: 065
     Dates: start: 20020101
  6. PROTONIX [Concomitant]
     Route: 065
     Dates: start: 20020101
  7. REGLAN [Concomitant]
     Route: 065
     Dates: start: 20021102, end: 20021122
  8. VANCOMYCIN [Concomitant]
     Route: 042
     Dates: start: 20021102, end: 20021126

REACTIONS (5)
  - DEHYDRATION [None]
  - HEPATIC ENZYME INCREASED [None]
  - HYPONATRAEMIA [None]
  - STAPHYLOCOCCAL INFECTION [None]
  - UPPER GASTROINTESTINAL HAEMORRHAGE [None]
